FAERS Safety Report 4894832-3 (Version None)
Quarter: 2006Q1

REPORT INFORMATION
  Report Type: 
  Country: None (occurrence: None)
  Receive Date: 20060127
  Receipt Date: 20060127
  Transmission Date: 20060701
  Serious: Yes (Other)
  Sender: FDA-Public Use
  Company Number: None

PATIENT
  Age: 16 Year
  Sex: Male

DRUGS (1)
  1. CORICIDIN HBP COUGH AND COLD (CHLORPHENIRAMINE MAL/DEX TABLETS [Suspect]
     Indication: POISONING
     Dosage: ORAL
     Route: 048

REACTIONS (7)
  - DRUG DEPENDENCE [None]
  - DRUG WITHDRAWAL SYNDROME [None]
  - DYSPHORIA [None]
  - INSOMNIA [None]
  - INTENTIONAL DRUG MISUSE [None]
  - INTENTIONAL OVERDOSE [None]
  - RESTLESSNESS [None]
